FAERS Safety Report 5443897-9 (Version None)
Quarter: 2007Q3

REPORT INFORMATION
  Report Type: 
  Country: None (occurrence: None)
  Receive Date: 20070905
  Receipt Date: 20070823
  Transmission Date: 20080115
  Serious: No
  Sender: FDA-Public Use
  Company Number: US-BOEHRINGER INGELHEIM PHARMACEUTICALS, INC.-2007-BP-17883BP

PATIENT
  Age: 86 Year
  Sex: Female

DRUGS (6)
  1. CATAPRES-TTS-1 [Suspect]
     Indication: HYPERTENSION
     Route: 061
     Dates: start: 20030101
  2. NORVASC [Concomitant]
     Indication: HYPERTENSION
  3. ASPIRIN [Concomitant]
     Route: 048
  4. TOPROL-XL [Concomitant]
  5. ACTONEL [Concomitant]
  6. AMILORIDE HYDROCHLORIDE [Concomitant]

REACTIONS (4)
  - APPLICATION SITE ERYTHEMA [None]
  - APPLICATION SITE PAIN [None]
  - APPLICATION SITE PRURITUS [None]
  - PAIN [None]
